FAERS Safety Report 19229022 (Version 1)
Quarter: 2021Q2

REPORT INFORMATION
  Report Type: Other
  Country: IT (occurrence: IT)
  Receive Date: 20210507
  Receipt Date: 20210507
  Transmission Date: 20210717
  Serious: Yes (Other)
  Sender: FDA-Public Use
  Company Number: IT-ROCHE-2819427

PATIENT
  Age: 62 Year
  Sex: Female

DRUGS (4)
  1. DURVALUMAB. [Suspect]
     Active Substance: DURVALUMAB
     Indication: OROPHARYNGEAL SQUAMOUS CELL CARCINOMA
     Route: 065
  2. PANTOPRAZOLE [Concomitant]
     Active Substance: PANTOPRAZOLE
  3. AVELUMAB [Suspect]
     Active Substance: AVELUMAB
     Indication: OROPHARYNGEAL SQUAMOUS CELL CARCINOMA
     Route: 065
  4. ATEZOLIZUMAB. [Suspect]
     Active Substance: ATEZOLIZUMAB
     Indication: OROPHARYNGEAL SQUAMOUS CELL CARCINOMA
     Route: 065

REACTIONS (1)
  - Foot fracture [Unknown]
